FAERS Safety Report 16073628 (Version 1)
Quarter: 2019Q1

REPORT INFORMATION
  Report Type: Spontaneous
  Country: US (occurrence: US)
  Receive Date: 20190314
  Receipt Date: 20190314
  Transmission Date: 20190418
  Serious: No
  Sender: FDA-Public Use
  Company Number: US-ASTRAZENECA-2019SE26686

PATIENT
  Sex: Female

DRUGS (1)
  1. FASENRA [Suspect]
     Active Substance: BENRALIZUMAB
     Indication: ASTHMA
     Route: 058
     Dates: start: 201805

REACTIONS (5)
  - Eosinophil count increased [Recovering/Resolving]
  - Dermatitis atopic [Not Recovered/Not Resolved]
  - Blood immunoglobulin G increased [Unknown]
  - Eosinophil count decreased [Recovered/Resolved]
  - Skin infection [Unknown]

NARRATIVE: CASE EVENT DATE: 201809
